FAERS Safety Report 11234857 (Version 3)
Quarter: 2016Q1

REPORT INFORMATION
  Report Type: Report from Study
  Country: FR (occurrence: FR)
  Receive Date: 20150702
  Receipt Date: 20160229
  Transmission Date: 20160525
  Serious: Yes (Other)
  Sender: FDA-Public Use
  Company Number: FR-ARIAD PHARMACEUTICALS, INC-2015FR005141

PATIENT
  Age: 59 Year
  Sex: Male
  Weight: 53 kg

DRUGS (5)
  1. FLUINDIONE [Concomitant]
     Active Substance: FLUINDIONE
     Indication: PROPHYLAXIS
     Dosage: UNK
     Route: 048
     Dates: start: 200505
  2. MACROGOL [Concomitant]
     Active Substance: POLYETHYLENE GLYCOLS
     Indication: CONSTIPATION
     Dosage: UNK
     Route: 048
     Dates: start: 20140726, end: 20150624
  3. PONATINIB [Suspect]
     Active Substance: PONATINIB
     Dosage: 15 MG, QOD
     Route: 048
     Dates: start: 20150624
  4. AMLOR [Concomitant]
     Active Substance: AMLODIPINE BESYLATE
     Indication: HYPERTENSION
     Dosage: UNK
     Route: 048
     Dates: start: 201212, end: 20150501
  5. PONATINIB [Suspect]
     Active Substance: PONATINIB
     Indication: CHRONIC MYELOID LEUKAEMIA
     Dosage: 15 MG, QD
     Route: 048
     Dates: start: 20110801, end: 20150623

REACTIONS (1)
  - Angina pectoris [Recovered/Resolved]

NARRATIVE: CASE EVENT DATE: 20150416
